FAERS Safety Report 18745641 (Version 2)
Quarter: 2021Q1

REPORT INFORMATION
  Report Type: Spontaneous
  Country: US (occurrence: US)
  Receive Date: 20210115
  Receipt Date: 20210127
  Transmission Date: 20210419
  Serious: No
  Sender: FDA-Public Use
  Company Number: US-CELGENEUS-USA-20210101096

PATIENT
  Sex: Female

DRUGS (2)
  1. POMALYST [Suspect]
     Active Substance: POMALIDOMIDE
     Indication: PLASMA CELL MYELOMA RECURRENT
     Route: 048
     Dates: start: 20200505
  2. POMALYST [Suspect]
     Active Substance: POMALIDOMIDE
     Dosage: 4 MILLIGRAM
     Route: 048
     Dates: start: 202012

REACTIONS (7)
  - Hypoaesthesia [Unknown]
  - Muscular weakness [Unknown]
  - Abdominal distension [Unknown]
  - Peripheral swelling [Unknown]
  - Dyspnoea [Unknown]
  - Weight increased [Unknown]
  - Back pain [Unknown]
